FAERS Safety Report 4263700-2 (Version None)
Quarter: 2004Q1

REPORT INFORMATION
  Report Type: 
  Country: None (occurrence: None)
  Receive Date: 20040102
  Receipt Date: 20031215
  Transmission Date: 20041129
  Serious: Yes (Other)
  Sender: FDA-Public Use
  Company Number: USA031254655

PATIENT
  Age: 13 Year
  Sex: Female
  Weight: 46 kg

DRUGS (1)
  1. STRATTERA [Suspect]
     Dosage: 60 MG/DAY
     Dates: start: 20030901

REACTIONS (3)
  - CHEST PAIN [None]
  - DYSPNOEA [None]
  - ELECTROCARDIOGRAM QT PROLONGED [None]
